FAERS Safety Report 8819010 (Version 1)
Quarter: 2012Q4

REPORT INFORMATION
  Report Type: Spontaneous
  Country: ES (occurrence: None)
  Receive Date: 20121003
  Receipt Date: 20121003
  Transmission Date: 20130627
  Serious: Yes (Other)
  Sender: FDA-Public Use
  Company Number: 2012-003559

PATIENT
  Age: 76 Year
  Sex: Female
  Weight: 49 kg

DRUGS (3)
  1. ACTONEL (RISEDRONATE SODIUM) TABLET, 35MG [Suspect]
     Dates: start: 20030201, end: 20080701
  2. PREOTACT [Suspect]
     Route: 058
     Dates: start: 20080701, end: 20100302
  3. OPTRUMA [Concomitant]

REACTIONS (1)
  - Atypical femur fracture [None]
